FAERS Safety Report 20289987 (Version 2)
Quarter: 2022Q1

REPORT INFORMATION
  Report Type: Spontaneous
  Country: US (occurrence: US)
  Receive Date: 20220104
  Receipt Date: 20220311
  Transmission Date: 20220423
  Serious: No
  Sender: FDA-Public Use
  Company Number: US-CELGENE-USA-20211209673

PATIENT
  Age: 85 Year
  Sex: Male

DRUGS (4)
  1. REVLIMID [Suspect]
     Active Substance: LENALIDOMIDE
     Indication: Plasma cell myeloma
     Dosage: 10 MILLIGRAM
     Route: 048
     Dates: start: 202111
  2. REVLIMID [Suspect]
     Active Substance: LENALIDOMIDE
     Dosage: 10 MILLIGRAM
     Route: 048
     Dates: start: 20211110
  3. CARFILZOMIB [Concomitant]
     Active Substance: CARFILZOMIB
     Indication: Plasma cell myeloma
     Route: 041
     Dates: start: 20211110, end: 20211110
  4. CARFILZOMIB [Concomitant]
     Active Substance: CARFILZOMIB
     Route: 041
     Dates: start: 20211117, end: 20211117

REACTIONS (1)
  - Full blood count abnormal [Recovered/Resolved]

NARRATIVE: CASE EVENT DATE: 20211124
